FAERS Safety Report 19770367 (Version 1)
Quarter: 2021Q3

REPORT INFORMATION
  Report Type: Spontaneous
  Country: US (occurrence: US)
  Receive Date: 20210831
  Receipt Date: 20210831
  Transmission Date: 20211014
  Serious: Yes (Hospitalization)
  Sender: FDA-Public Use
  Company Number: None

PATIENT
  Sex: Male
  Weight: 107.1 kg

DRUGS (13)
  1. CETIRIZINE [Concomitant]
     Active Substance: CETIRIZINE HYDROCHLORIDE
  2. COENZYME Q?10 [Concomitant]
  3. MELATONIN [Concomitant]
     Active Substance: MELATONIN
  4. MULTIVITAMIN [Concomitant]
     Active Substance: VITAMINS
  5. PEPECID [Concomitant]
  6. INLYTA [Suspect]
     Active Substance: AXITINIB
     Indication: RENAL CANCER
     Route: 048
  7. HYDROCHLOROTHIAZIDE. [Concomitant]
     Active Substance: HYDROCHLOROTHIAZIDE
  8. LISINOPRIL. [Concomitant]
     Active Substance: LISINOPRIL
  9. NORCO [Concomitant]
     Active Substance: ACETAMINOPHEN\HYDROCODONE BITARTRATE
  10. ONDANSETRON [Concomitant]
     Active Substance: ONDANSETRON
  11. CALAN [Concomitant]
     Active Substance: VERAPAMIL HYDROCHLORIDE
  12. MULTAQ [Concomitant]
     Active Substance: DRONEDARONE
  13. OMEGA 3 [Concomitant]
     Active Substance: OMEGA-3 FATTY ACIDS

REACTIONS (1)
  - Hospitalisation [None]
